FAERS Safety Report 7954717-2 (Version None)
Quarter: 2011Q4

REPORT INFORMATION
  Report Type: 
  Country: None (occurrence: None)
  Receive Date: 20111202
  Receipt Date: 20111123
  Transmission Date: 20120403
  Serious: Yes (Other)
  Sender: FDA-Public Use
  Company Number: DE-ROCHE-1017520

PATIENT
  Age: 35 Year
  Sex: Female
  Weight: 78 kg

DRUGS (5)
  1. DIAZEPAM [Suspect]
     Indication: BIPOLAR DISORDER
     Route: 048
     Dates: start: 20100826, end: 20110510
  2. LITHIUM [Suspect]
     Indication: BIPOLAR DISORDER
     Route: 048
     Dates: start: 20100826, end: 20110510
  3. TRANYLCYPROMINE SULFATE [Suspect]
     Indication: BIPOLAR DISORDER
     Route: 048
     Dates: start: 20100826, end: 20110510
  4. ONDANSETRON [Suspect]
     Indication: HYPEREMESIS GRAVIDARUM
     Route: 041
     Dates: start: 20101017, end: 20110510
  5. FOLIC ACID [Suspect]
     Indication: PROPHYLAXIS OF NEURAL TUBE DEFECT
     Route: 048

REACTIONS (2)
  - PREMATURE BABY [None]
  - MATERNAL EXPOSURE DURING PREGNANCY [None]
